FAERS Safety Report 6478662-7 (Version None)
Quarter: 2009Q4

REPORT INFORMATION
  Report Type: 
  Country: None (occurrence: None)
  Receive Date: 20091207
  Receipt Date: 20091201
  Transmission Date: 20100525
  Serious: Yes (Hospitalization, Other)
  Sender: FDA-Public Use
  Company Number: GB-BRISTOL-MYERS SQUIBB COMPANY-14864029

PATIENT
  Age: 48 Year
  Sex: Female

DRUGS (6)
  1. PACLITAXEL [Suspect]
     Indication: BREAST CANCER
     Dates: start: 20071001
  2. CAPECITABINE [Suspect]
     Indication: BREAST CANCER
     Dosage: MAY2007-JUNE2007, JUNE2008-AUG2008
     Dates: start: 20070501, end: 20080801
  3. DOCETAXEL [Suspect]
     Indication: BREAST CANCER
     Dates: start: 20071001, end: 20080301
  4. LAPATINIB [Suspect]
     Indication: BREAST CANCER
     Dates: start: 20080601, end: 20080801
  5. TRASTUZUMAB [Suspect]
     Indication: BREAST CANCER
     Dosage: JAN2006-MAR2007, ONCE EVERY THREE WEEKS, OCT-2007-MAR2008
     Dates: start: 20060101, end: 20080301
  6. VINORELBINE [Suspect]
     Indication: BREAST CANCER
     Dates: start: 20070601, end: 20070901

REACTIONS (6)
  - ABDOMINAL PAIN [None]
  - JOINT SWELLING [None]
  - LETHARGY [None]
  - MALIGNANT NEOPLASM PROGRESSION [None]
  - UTERINE HAEMORRHAGE [None]
  - VOMITING [None]
